FAERS Safety Report 10221453 (Version 4)
Quarter: 2014Q3

REPORT INFORMATION
  Report Type: Spontaneous
  Country: BR (occurrence: BR)
  Receive Date: 20140606
  Receipt Date: 20140918
  Transmission Date: 20150326
  Serious: Yes (Hospitalization)
  Sender: FDA-Public Use
  Company Number: BR-ASTRAZENECA-2014SE38718

PATIENT
  Age: 80 Year
  Sex: Female

DRUGS (8)
  1. NATRILIX [Concomitant]
     Active Substance: INDAPAMIDE
     Route: 048
  2. NEXIUM [Suspect]
     Active Substance: ESOMEPRAZOLE MAGNESIUM
     Indication: GASTRITIS PROPHYLAXIS
     Route: 048
     Dates: start: 2013
  3. BRILINTA [Suspect]
     Active Substance: TICAGRELOR
     Route: 048
     Dates: start: 2013
  4. RITMONORM [Concomitant]
     Route: 048
  5. CLOPIN [Concomitant]
     Active Substance: CLOPIDOGREL BISULFATE
  6. DIOSMIN [Concomitant]
     Active Substance: DIOSMIN
     Route: 048
  7. SYNTHROID [Concomitant]
     Active Substance: LEVOTHYROXINE SODIUM
     Route: 048
  8. DIOVAN [Concomitant]
     Active Substance: VALSARTAN
     Route: 048

REACTIONS (3)
  - Cerebral ischaemia [Recovered/Resolved with Sequelae]
  - Mental impairment [Recovered/Resolved]
  - Speech disorder [Recovered/Resolved]

NARRATIVE: CASE EVENT DATE: 20140430
